FAERS Safety Report 5804428-4 (Version None)
Quarter: 2008Q3

REPORT INFORMATION
  Report Type: 
  Country: None (occurrence: None)
  Receive Date: 20080707
  Receipt Date: 20080707
  Transmission Date: 20090109
  Serious: Yes (Hospitalization)
  Sender: FDA-Public Use
  Company Number: None

PATIENT
  Age: 57 Year
  Sex: Male
  Weight: 181 kg

DRUGS (1)
  1. CLINDAMYCIN HCL [Suspect]
     Indication: PROPHYLAXIS
     Dosage: 900MG Q8H IV
     Route: 042
     Dates: start: 20080624, end: 20080625

REACTIONS (1)
  - ERYTHEMA MULTIFORME [None]
